APPROVED DRUG PRODUCT: CEFUROXIME SODIUM
Active Ingredient: CEFUROXIME SODIUM
Strength: EQ 750MG BASE/VIAL
Dosage Form/Route: INJECTABLE;INTRAMUSCULAR, INTRAVENOUS
Application: A065048 | Product #001 | TE Code: AB
Applicant: HIKMA FARMACEUTICA PORTUGAL SA
Approved: Jan 9, 2004 | RLD: No | RS: Yes | Type: RX